FAERS Safety Report 4502252-6 (Version None)
Quarter: 2004Q4

REPORT INFORMATION
  Report Type: 
  Country: None (occurrence: None)
  Receive Date: 20041109
  Receipt Date: 20041027
  Transmission Date: 20050328
  Serious: Yes (Other)
  Sender: FDA-Public Use
  Company Number: DE_041014564

PATIENT
  Age: 25 Year
  Sex: Male

DRUGS (2)
  1. ZYPREXA [Suspect]
     Indication: SCHIZOPHRENIA, PARANOID TYPE
     Dosage: 20 MG DAY
     Dates: start: 20040501, end: 20040801
  2. CEFUHEXAL (CEFUROXIME) [Concomitant]

REACTIONS (9)
  - ERYTHEMA NODOSUM [None]
  - INDURATION [None]
  - LEUKOCYTOSIS [None]
  - MUSCLE DISORDER [None]
  - OEDEMA [None]
  - RED BLOOD CELL SEDIMENTATION RATE INCREASED [None]
  - SINOBRONCHITIS [None]
  - VEIN DISORDER [None]
  - WEIGHT INCREASED [None]
